FAERS Safety Report 5018332-5 (Version None)
Quarter: 2006Q2

REPORT INFORMATION
  Report Type: 
  Country: None (occurrence: None)
  Receive Date: 20060530
  Receipt Date: 20050523
  Transmission Date: 20061013
  Serious: Yes (Other)
  Sender: FDA-Public Use
  Company Number: 2005079526

PATIENT
  Age: 59 Year
  Sex: Female

DRUGS (3)
  1. LYRICA [Suspect]
     Indication: TRIGEMINAL NEURALGIA
     Dosage: 300 MG (100 MG, 3 IN 1 D), ORAL
     Route: 048
     Dates: start: 20050419
  2. DICLOFENAC SODIUM [Concomitant]
  3. CONJUGATED OESTROGENS (ESTROGENS CONJUGATED, MEDROXYPROGESTERONE ACETA [Concomitant]

REACTIONS (4)
  - DRUG INEFFECTIVE [None]
  - INADEQUATE ANALGESIA [None]
  - MICTURITION URGENCY [None]
  - URINARY INCONTINENCE [None]
